FAERS Safety Report 4575778-7 (Version None)
Quarter: 2005Q1

REPORT INFORMATION
  Report Type: 
  Country: None (occurrence: None)
  Receive Date: 20050204
  Receipt Date: 20050124
  Transmission Date: 20050727
  Serious: Yes (Other)
  Sender: FDA-Public Use
  Company Number: 2004117058

PATIENT
  Age: 77 Year
  Sex: Male

DRUGS (2)
  1. BEXTRA [Suspect]
     Indication: CERVICAL ROOT PAIN
     Dosage: 20 MG (1 D), ORAL
     Route: 048
     Dates: start: 20041207
  2. ACETYLSALICYLIC ACID SRT [Concomitant]

REACTIONS (2)
  - ANGIONEUROTIC OEDEMA [None]
  - PERIORBITAL HAEMATOMA [None]
